FAERS Safety Report 8059234-X (Version None)
Quarter: 2012Q1

REPORT INFORMATION
  Report Type: 
  Country: None (occurrence: None)
  Receive Date: 20120119
  Receipt Date: 20120119
  Transmission Date: 20120608
  Serious: Yes (Death)
  Sender: FDA-Public Use
  Company Number: None

PATIENT
  Age: 67 Year
  Sex: Female
  Weight: 74.1 kg

DRUGS (7)
  1. LEVOTHYROXINE SODIUM [Concomitant]
  2. SUTENT [Suspect]
     Indication: RENAL CELL CARCINOMA
     Dosage: 50MG QDAILY 047(ORAL)
     Route: 048
     Dates: start: 20111221, end: 20111227
  3. ASPIRIN [Suspect]
     Indication: CEREBROVASCULAR ACCIDENT PROPHYLAXIS
     Dosage: 81MG QDAILY 047(ORAL)
     Route: 048
  4. ATENOLOL [Concomitant]
  5. KLOR-CON [Concomitant]
  6. PRAVASTATIN [Concomitant]
  7. DIOVAN HCT [Concomitant]

REACTIONS (1)
  - HAEMORRHAGE INTRACRANIAL [None]
